FAERS Safety Report 9439023 (Version 2)
Quarter: 2013Q3

REPORT INFORMATION
  Report Type: Report from Study
  Country: CA (occurrence: CA)
  Receive Date: 20130802
  Receipt Date: 20130903
  Transmission Date: 20140515
  Serious: Yes (Hospitalization)
  Sender: FDA-Public Use
  Company Number: CA-ABBOTT-13P-028-1108216-00

PATIENT
  Age: 28 Year
  Sex: Female
  Weight: 62 kg

DRUGS (3)
  1. HUMIRA [Suspect]
     Indication: CROHN^S DISEASE
     Route: 058
     Dates: start: 20121122
  2. AZATHIOPRINE [Concomitant]
     Route: 048
     Dates: start: 20110214
  3. ESOMEPRAZOLE [Concomitant]
     Route: 048
     Dates: start: 20120313

REACTIONS (1)
  - Intestinal ischaemia [Recovered/Resolved with Sequelae]
